FAERS Safety Report 23539418 (Version 1)
Quarter: 2024Q1

REPORT INFORMATION
  Report Type: Spontaneous
  Country: US (occurrence: US)
  Receive Date: 20240219
  Receipt Date: 20240219
  Transmission Date: 20240410
  Serious: Yes (Other)
  Sender: FDA-Public Use
  Company Number: US-OTTER-US-2024AST000055

PATIENT
  Age: 5 Year
  Sex: Male

DRUGS (1)
  1. METHOTREXATE [Suspect]
     Active Substance: METHOTREXATE
     Indication: Acute lymphocytic leukaemia
     Dosage: 12 MILLIGRAM (WITH 24 MG ARA-C, 12 MG HCT)
     Route: 042

REACTIONS (2)
  - Unresponsive to stimuli [Unknown]
  - Neurotoxicity [Unknown]
